FAERS Safety Report 6838628-1 (Version None)
Quarter: 2010Q3

REPORT INFORMATION
  Report Type: 
  Country: None (occurrence: None)
  Receive Date: 20100713
  Receipt Date: 20070705
  Transmission Date: 20110219
  Serious: No
  Sender: FDA-Public Use
  Company Number: US-PFIZER INC-2007050487

PATIENT
  Sex: Female
  Weight: 79.4 kg

DRUGS (5)
  1. CHANTIX [Suspect]
     Indication: SMOKING CESSATION THERAPY
     Dates: start: 20070511
  2. NEXIUM [Concomitant]
  3. ESTRADERM [Concomitant]
     Dates: start: 19890101
  4. SPIRIVA [Concomitant]
     Route: 055
  5. ADVAIR DISKUS 100/50 [Concomitant]
     Route: 055

REACTIONS (6)
  - CONSTIPATION [None]
  - FATIGUE [None]
  - INSOMNIA [None]
  - NAUSEA [None]
  - TREMOR [None]
  - VOMITING [None]
